FAERS Safety Report 5814731-X (Version None)
Quarter: 2008Q3

REPORT INFORMATION
  Report Type: 
  Country: None (occurrence: None)
  Receive Date: 20080718
  Receipt Date: 20080214
  Transmission Date: 20090109
  Serious: No
  Sender: FDA-Public Use
  Company Number: US-KINGPHARMUSA00001-K200700649

PATIENT

DRUGS (5)
  1. LEVOXYL [Suspect]
     Indication: HYPOTHYROIDISM
     Dates: start: 20040101
  2. LEVOXYL [Suspect]
     Dosage: 150 MCG, QD
     Dates: start: 20080201
  3. PAXIL [Suspect]
     Indication: DEPRESSION
     Dosage: UNK, UNK
     Dates: end: 20070401
  4. CELEXA [Concomitant]
     Indication: DEPRESSION
     Dosage: 40 MG, QD
  5. STOOL SOFTENER [Concomitant]

REACTIONS (5)
  - DRUG EXPOSURE DURING PREGNANCY [None]
  - EYE INFECTION [None]
  - PARAESTHESIA [None]
  - TINNITUS [None]
  - WEIGHT INCREASED [None]
